FAERS Safety Report 7296369-3 (Version None)
Quarter: 2011Q1

REPORT INFORMATION
  Report Type: 
  Country: None (occurrence: None)
  Receive Date: 20110211
  Receipt Date: 20110211
  Transmission Date: 20110831
  Serious: Yes (Life-Threatening, Hospitalization)
  Sender: FDA-Public Use
  Company Number: None

PATIENT
  Age: 67 Year
  Sex: Male
  Weight: 127.0072 kg

DRUGS (2)
  1. QUINAPRIL [Suspect]
     Dosage: 20 MG 1 P.M. ORAL
     Route: 048
  2. QUINAPRIL [Suspect]
     Indication: HYPERTENSION
     Dosage: 40 MG 1 A.M. ORAL
     Route: 048

REACTIONS (4)
  - PRURITUS [None]
  - APHASIA [None]
  - URTICARIA [None]
  - SWOLLEN TONGUE [None]
